FAERS Safety Report 5110826-7 (Version None)
Quarter: 2006Q3

REPORT INFORMATION
  Report Type: 
  Country: None (occurrence: None)
  Receive Date: 20060919
  Receipt Date: 20060905
  Transmission Date: 20061208
  Serious: Yes (Hospitalization)
  Sender: FDA-Public Use
  Company Number: THYR-10344

PATIENT
  Sex: Female

DRUGS (1)
  1. THYROGEN [Suspect]
     Indication: GOITRE
     Dosage: 0.3 MG ONCE IM
     Route: 030

REACTIONS (3)
  - HYPERTHYROIDISM [None]
  - ODYNOPHAGIA [None]
  - THYROIDITIS [None]
